FAERS Safety Report 11202625 (Version 2)
Quarter: 2015Q3

REPORT INFORMATION
  Report Type: Spontaneous
  Country: CZ (occurrence: CZ)
  Receive Date: 20150619
  Receipt Date: 20150716
  Transmission Date: 20151125
  Serious: Yes (Other)
  Sender: FDA-Public Use
  Company Number: PHHY2015CZ071302

PATIENT
  Age: 63 Year
  Sex: Male
  Weight: 73 kg

DRUGS (7)
  1. METFORMIN [Suspect]
     Active Substance: METFORMIN HYDROCHLORIDE
     Indication: HYPERGLYCAEMIA
     Route: 065
  2. EUCREAS [Suspect]
     Active Substance: METFORMIN HYDROCHLORIDE\VILDAGLIPTIN
     Indication: HYPERCHOLESTEROLAEMIA
     Dosage: 1000 MG, BID
     Route: 065
     Dates: start: 20120810
  3. LEVEMIR [Concomitant]
     Active Substance: INSULIN DETEMIR
     Indication: DIABETES MELLITUS
     Route: 065
  4. EUCREAS [Suspect]
     Active Substance: METFORMIN HYDROCHLORIDE\VILDAGLIPTIN
     Indication: HYPERGLYCAEMIA
     Dosage: 50 MG, BID
     Route: 065
  5. APIDRA [Suspect]
     Active Substance: INSULIN GLULISINE
     Indication: DIABETES MELLITUS
     Route: 065
  6. NOVORAPID [Concomitant]
     Active Substance: INSULIN ASPART
     Indication: DIABETES MELLITUS
     Route: 065
  7. LANTUS [Suspect]
     Active Substance: INSULIN GLARGINE
     Indication: DIABETES MELLITUS
     Route: 065

REACTIONS (8)
  - Glycosylated haemoglobin increased [Unknown]
  - Drug ineffective [Unknown]
  - Diabetic neuropathy [Unknown]
  - Diabetes mellitus inadequate control [Unknown]
  - Hypoglycaemia [Recovered/Resolved]
  - Microalbuminuria [Unknown]
  - Diabetic retinopathy [Unknown]
  - Weight increased [Recovered/Resolved]

NARRATIVE: CASE EVENT DATE: 201211
